FAERS Safety Report 15587935 (Version 5)
Quarter: 2019Q4

REPORT INFORMATION
  Report Type: Spontaneous
  Country: PT (occurrence: PT)
  Receive Date: 20181105
  Receipt Date: 20191018
  Transmission Date: 20200122
  Serious: Yes (Hospitalization, Disabling, Other)
  Sender: FDA-Public Use
  Company Number: PT-009507513-1810PRT013518

PATIENT
  Age: 84 Year
  Sex: Female
  Weight: 50 kg

DRUGS (7)
  1. LOSARTAN. [Concomitant]
     Active Substance: LOSARTAN
     Dosage: UNK
     Dates: start: 201806
  2. FLUVASTATIN SODIUM. [Concomitant]
     Active Substance: FLUVASTATIN SODIUM
     Dosage: UNK
     Dates: start: 201806
  3. JANUVIA [Suspect]
     Active Substance: SITAGLIPTIN PHOSPHATE
     Indication: TYPE 2 DIABETES MELLITUS
     Dosage: 100 MILLIGRAM, QD
     Route: 048
     Dates: start: 20180614, end: 20180617
  4. CORTICOSTEROIDS (UNSPECIFIED) [Suspect]
     Active Substance: UNSPECIFIED INGREDIENT
     Dosage: UNK
  5. FORXIGA [Concomitant]
     Active Substance: DAPAGLIFLOZIN
     Indication: TYPE 2 DIABETES MELLITUS
     Dosage: 10 MILLIGRAM, QD
     Route: 048
     Dates: start: 201806
  6. FORXIGA [Concomitant]
     Active Substance: DAPAGLIFLOZIN
     Dosage: 10 MILLIGRAM, QD
     Route: 048
  7. MEBEVERINE [Concomitant]
     Active Substance: MEBEVERINE
     Dosage: UNK
     Dates: start: 201806

REACTIONS (5)
  - Sudden visual loss [Not Recovered/Not Resolved]
  - Optic ischaemic neuropathy [Not Recovered/Not Resolved]
  - Blindness [Unknown]
  - Diabetic metabolic decompensation [Not Recovered/Not Resolved]
  - Temporal arteritis [Not Recovered/Not Resolved]

NARRATIVE: CASE EVENT DATE: 2018
